FAERS Safety Report 20579291 (Version 1)
Quarter: 2022Q1

REPORT INFORMATION
  Report Type: Spontaneous
  Country: CA (occurrence: CA)
  Receive Date: 20220310
  Receipt Date: 20220310
  Transmission Date: 20220423
  Serious: Yes (Other)
  Sender: FDA-Public Use
  Company Number: CA-TAKEDA-2022TUS015954

PATIENT
  Age: 67 Year
  Sex: Female

DRUGS (1)
  1. DEXILANT [Suspect]
     Active Substance: DEXLANSOPRAZOLE
     Indication: Pain
     Dosage: 60 MILLIGRAM, QD
     Route: 065

REACTIONS (2)
  - Coeliac disease [Unknown]
  - Product use in unapproved indication [Unknown]
